FAERS Safety Report 4370650-X (Version None)
Quarter: 2004Q2

REPORT INFORMATION
  Report Type: 
  Country: None (occurrence: None)
  Receive Date: 20040528
  Receipt Date: 20040512
  Transmission Date: 20050107
  Serious: Yes (Hospitalization)
  Sender: FDA-Public Use
  Company Number: DSA_24425_2004

PATIENT
  Sex: Female

DRUGS (11)
  1. ISOSORBIDE [Suspect]
     Dosage: 40 MG QD PO
     Route: 048
  2. HYDROCHLOROTHIAZIDE [Suspect]
     Dosage: 25 MG QD
     Dates: start: 20000224
  3. ATENOLOL [Suspect]
     Dosage: 50 MG QD
     Dates: start: 19991230
  4. MAVIK [Suspect]
     Dosage: DF
  5. DIGOXIN [Suspect]
     Dosage: 0.125 MG QD PO
     Route: 048
  6. PLAVIX [Suspect]
     Dosage: 75 MG QD PO
     Route: 048
  7. ACTOS [Suspect]
     Dosage: 15 MG QD PO
     Route: 048
  8. LIPITOR [Suspect]
     Dosage: 40 MG QD PO
     Route: 048
  9. AZMACORT [Suspect]
     Dosage: 2 PUFF(S) BID  IN
     Route: 055
  10. PROVENTIL [Suspect]
     Dosage: DF PRN IH
     Route: 055
  11. NPH INSULIN [Suspect]
     Dosage: 54 DF Q DAY

REACTIONS (5)
  - ASTHENIA [None]
  - BLOOD PRESSURE INCREASED [None]
  - DIZZINESS [None]
  - HEADACHE [None]
  - RESPIRATORY RATE INCREASED [None]
